FAERS Safety Report 4823708-2 (Version None)
Quarter: 2005Q4

REPORT INFORMATION
  Report Type: 
  Country: None (occurrence: None)
  Receive Date: 20051107
  Receipt Date: 20051027
  Transmission Date: 20060501
  Serious: Yes (Life-Threatening, Hospitalization)
  Sender: FDA-Public Use
  Company Number: GXKR2005DK01849

PATIENT
  Age: 46 Year
  Sex: Female

DRUGS (5)
  1. FUROSEMIDE [Suspect]
     Indication: OVERWEIGHT
     Dosage: 40 MG, BID - 120 MG, QD
  2. BENDROFLUMETHIAZIDE (BENDROFLUMETHIAZIDE) [Suspect]
     Indication: OVERWEIGHT
  3. CISAPRIDE (CISAPRIDE) [Suspect]
     Indication: STOMACH DISCOMFORT
  4. EBASTINE [Suspect]
     Indication: HYPERSENSITIVITY
  5. POTASSIUM (POTASSIUM) [Concomitant]

REACTIONS (9)
  - CARDIAC ARREST [None]
  - DRUG INTERACTION [None]
  - ELECTROCARDIOGRAM QT PROLONGED [None]
  - ELECTROCARDIOGRAM T WAVE ABNORMAL [None]
  - HYPOKALAEMIA [None]
  - INTENTIONAL DRUG MISUSE [None]
  - OVERDOSE [None]
  - SYNCOPE [None]
  - VENTRICULAR FIBRILLATION [None]
